FAERS Safety Report 23782768 (Version 1)
Quarter: 2024Q2

REPORT INFORMATION
  Report Type: Spontaneous
  Country: US (occurrence: None)
  Receive Date: 20240424
  Receipt Date: 20240424
  Transmission Date: 20240716
  Serious: Yes (Hospitalization)
  Sender: FDA-Public Use
  Company Number: None

PATIENT
  Age: 77 Year
  Sex: Male
  Weight: 60 kg

DRUGS (1)
  1. CIPROFLOXACIN [Suspect]
     Active Substance: CIPROFLOXACIN
     Indication: Product used for unknown indication
     Dosage: FREQUENCY : DAILY;?
     Route: 048
     Dates: start: 20231226, end: 20240121

REACTIONS (6)
  - Abdominal pain [None]
  - Clostridium difficile infection [None]
  - Pleocytosis [None]
  - Ascites [None]
  - Peritonitis [None]
  - Clostridium difficile colitis [None]

NARRATIVE: CASE EVENT DATE: 20240119
